FAERS Safety Report 24034473 (Version 2)
Quarter: 2024Q3

REPORT INFORMATION
  Report Type: Spontaneous
  Country: US (occurrence: US)
  Receive Date: 20240701
  Receipt Date: 20240923
  Transmission Date: 20241016
  Serious: Yes (Other)
  Sender: BAYER
  Company Number: US-BAYER-2024A089468

PATIENT
  Age: 54 Year
  Sex: Female

DRUGS (2)
  1. MIRENA [Suspect]
     Active Substance: LEVONORGESTREL
     Indication: Contraception
     Dosage: 20?G/DAY
     Route: 015
     Dates: start: 202303
  2. OXBRYTA [Concomitant]
     Active Substance: VOXELOTOR

REACTIONS (4)
  - Thrombosis [None]
  - Joint swelling [Recovered/Resolved]
  - Gravitational oedema [None]
  - Adverse drug reaction [None]
